FAERS Safety Report 8393986-4 (Version None)
Quarter: 2012Q2

REPORT INFORMATION
  Report Type: 
  Country: None (occurrence: None)
  Receive Date: 20120517
  Receipt Date: 20120507
  Transmission Date: 20120825
  Serious: Yes (Hospitalization)
  Sender: FDA-Public Use
  Company Number: 2012SP024833

PATIENT
  Age: 14 Year
  Sex: Male

DRUGS (1)
  1. METHYLPREDNISOLONE SODIUM SUCCINATE [Suspect]
     Indication: SPINAL CORD INJURY

REACTIONS (4)
  - UROSEPSIS [None]
  - CONSTIPATION [None]
  - NEUROGENIC BLADDER [None]
  - MUSCULAR WEAKNESS [None]
